FAERS Safety Report 9736042 (Version 3)
Quarter: 2015Q4

REPORT INFORMATION
  Report Type: Spontaneous
  Country: BR (occurrence: BR)
  Receive Date: 20131206
  Receipt Date: 20151009
  Transmission Date: 20160305
  Serious: Yes (Other)
  Sender: FDA-Public Use
  Company Number: BR-PFIZER INC-2013337272

PATIENT
  Age: 77 Year
  Sex: Female
  Weight: 75 kg

DRUGS (4)
  1. FRONTAL [Concomitant]
     Active Substance: ALPRAZOLAM
  2. KETOCONAZOLE. [Interacting]
     Active Substance: KETOCONAZOLE
     Indication: VULVOVAGINAL DISCOMFORT
  3. CRESTOR [Concomitant]
     Active Substance: ROSUVASTATIN CALCIUM
     Indication: BLOOD CHOLESTEROL
  4. DETRUSITOL LA [Suspect]
     Active Substance: TOLTERODINE TARTRATE
     Indication: URINARY INCONTINENCE
     Dosage: UNK
     Dates: start: 20131122

REACTIONS (6)
  - Malaise [Unknown]
  - Tachycardia [Unknown]
  - Blood pressure decreased [Unknown]
  - Headache [Unknown]
  - Arrhythmia [Unknown]
  - Drug interaction [Unknown]

NARRATIVE: CASE EVENT DATE: 20131122
